FAERS Safety Report 21177542 (Version 2)
Quarter: 2022Q3

REPORT INFORMATION
  Report Type: Report from Study
  Country: AU (occurrence: AU)
  Receive Date: 20220805
  Receipt Date: 20220818
  Transmission Date: 20221026
  Serious: Yes (Other)
  Sender: FDA-Public Use
  Company Number: AU-ABBVIE-22P-008-4487667-00

PATIENT
  Age: 53 Year

DRUGS (4)
  1. HUMIRA [Suspect]
     Active Substance: ADALIMUMAB
     Indication: Alopecia scarring
     Route: 058
     Dates: end: 202206
  2. HUMIRA [Suspect]
     Active Substance: ADALIMUMAB
     Indication: Acne conglobata
  3. CLINDATECH [Concomitant]
     Indication: Alopecia scarring
     Dosage: 2-3 TIMES A DAY
     Route: 061
     Dates: start: 20210803
  4. ERYC [Concomitant]
     Active Substance: ERYTHROMYCIN
     Indication: Alopecia scarring
     Route: 048
     Dates: start: 20201220

REACTIONS (1)
  - Systemic lupus erythematosus [Recovering/Resolving]

NARRATIVE: CASE EVENT DATE: 20220609
